FAERS Safety Report 9910778 (Version 1)
Quarter: 2014Q1

REPORT INFORMATION
  Report Type: Spontaneous
  Country: US (occurrence: US)
  Receive Date: 20140219
  Receipt Date: 20140219
  Transmission Date: 20141002
  Serious: Yes (Other)
  Sender: FDA-Public Use
  Company Number: US-PERRIGO-14US001505

PATIENT
  Age: 23 Year
  Sex: Female
  Weight: 55.78 kg

DRUGS (4)
  1. PROCHLORPERAZINE USP COMPRO RX 25 MG 5W1 [Suspect]
     Indication: NAUSEA
     Dosage: 25 MG, SINGLE
     Route: 054
     Dates: start: 20140206, end: 20140206
  2. LORAZEPAM [Concomitant]
     Indication: FIBROMYALGIA
     Dosage: UNK, UNK
     Route: 065
     Dates: start: 2012
  3. GABAPENTIN [Concomitant]
     Indication: FIBROMYALGIA
     Dosage: UNK, UNK
     Route: 065
     Dates: start: 2012
  4. FLUOXETINE [Concomitant]
     Indication: FIBROMYALGIA
     Dosage: UNK, UNK
     Route: 065
     Dates: start: 2012

REACTIONS (3)
  - Tongue disorder [Recovered/Resolved]
  - Swollen tongue [Recovered/Resolved]
  - Dystonia [Recovered/Resolved]
